FAERS Safety Report 7274907-4 (Version None)
Quarter: 2011Q1

REPORT INFORMATION
  Report Type: 
  Country: None (occurrence: None)
  Receive Date: 20110204
  Receipt Date: 20110124
  Transmission Date: 20110831
  Serious: Yes (Hospitalization)
  Sender: FDA-Public Use
  Company Number: DE-JNJFOC-20101104917

PATIENT
  Sex: Female
  Weight: 68 kg

DRUGS (17)
  1. NOVAMINSULFON [Concomitant]
  2. RAMIPRIL HCT [Concomitant]
  3. MIRTAZAPIN [Concomitant]
  4. DIGITOXIN [Concomitant]
  5. LYRICA [Concomitant]
  6. METOPROLOL SUCCINATE [Concomitant]
  7. OMEPRAZOLE [Concomitant]
  8. PENTAERYTHRITOL TETRANITRATE [Concomitant]
  9. LACTULOSE [Concomitant]
  10. MST [Concomitant]
  11. FLUPIRTINE [Concomitant]
  12. CALCIMAGON-D3 [Concomitant]
  13. EMBOLEX [Concomitant]
  14. ALLOPURINOL [Concomitant]
  15. LASIX [Concomitant]
  16. PALEXIA RETARD [Suspect]
     Indication: PAIN
     Dosage: 150 MG- 0 - 200 MG
     Route: 048
  17. FALITHROM [Concomitant]

REACTIONS (9)
  - MYOCARDIAL INFARCTION [None]
  - BLOOD PRESSURE INCREASED [None]
  - MENTAL STATUS CHANGES [None]
  - RESTLESSNESS [None]
  - CONFUSIONAL STATE [None]
  - LOSS OF CONSCIOUSNESS [None]
  - SPEECH DISORDER [None]
  - SEROTONIN SYNDROME [None]
  - ANXIETY [None]
